FAERS Safety Report 23235492 (Version 1)
Quarter: 2023Q4

REPORT INFORMATION
  Report Type: Spontaneous
  Country: GB (occurrence: GB)
  Receive Date: 20231128
  Receipt Date: 20231128
  Transmission Date: 20240110
  Serious: Yes (Other)
  Sender: FDA-Public Use
  Company Number: None

PATIENT
  Age: 45 Year
  Sex: Female
  Weight: 86 kg

DRUGS (14)
  1. PAXLOVID [Suspect]
     Active Substance: NIRMATRELVIR\RITONAVIR
     Indication: COVID-19 treatment
     Dosage: 1 DF, 2X/DAY, 150MG NIRMATRELVIR 100MG RITONAVIR 2X DAILY;
     Dates: start: 20231027, end: 20231029
  2. BACLOFEN [Concomitant]
     Active Substance: BACLOFEN
     Indication: Muscle spasms
     Dosage: UNK
     Dates: start: 20190101
  3. BUTYLSCOPOLAMINE BROMIDE [Concomitant]
     Active Substance: BUTYLSCOPOLAMINE BROMIDE
     Indication: Irritable bowel syndrome
     Dosage: UNK
     Dates: start: 19980101
  4. FERROUS FUMARATE [Concomitant]
     Active Substance: FERROUS FUMARATE
     Indication: Anaemia
     Dosage: UNK
     Dates: start: 20190101
  5. FLUOXETINE [Concomitant]
     Active Substance: FLUOXETINE HYDROCHLORIDE
     Indication: Depression
     Dosage: UNK
     Dates: start: 20160101
  6. FOLIC ACID [Concomitant]
     Active Substance: FOLIC ACID
     Indication: Anaemia vitamin B12 deficiency
     Dosage: UNK
     Dates: start: 20180101
  7. HYLO FORTE [Concomitant]
     Indication: Dry eye
     Dosage: UNK
     Dates: start: 20130101
  8. OXYCODONE HYDROCHLORIDE [Concomitant]
     Active Substance: OXYCODONE HYDROCHLORIDE
     Indication: Pain
     Dosage: UNK
     Dates: start: 20040101
  9. PREGABALIN [Concomitant]
     Active Substance: PREGABALIN
     Indication: Neuralgia
     Dosage: UNK
     Dates: start: 200401
  10. ACETAMINOPHEN [Concomitant]
     Active Substance: ACETAMINOPHEN
     Dosage: UNK
     Dates: start: 19980101
  11. LIDOCAINE HYDROCHLORIDE [Concomitant]
     Active Substance: DEXTROSE MONOHYDRATE\EPINEPHRINE\EPINEPHRINE BITARTRATE\LIDOCAINE\LIDOCAINE HYDROCHLORIDE\LIDOCAINE
     Indication: Pain of skin
     Dosage: UNK
     Dates: start: 20160101
  12. SENNA LEAF [Concomitant]
     Active Substance: SENNA LEAF
     Indication: Constipation
     Dosage: UNK
     Dates: start: 20220831
  13. OLODATEROL HYDROCHLORIDE\TIOTROPIUM BROMIDE MONOHYDRATE [Concomitant]
     Active Substance: OLODATEROL HYDROCHLORIDE\TIOTROPIUM BROMIDE MONOHYDRATE
     Indication: Chronic obstructive pulmonary disease
     Dosage: UNK
     Dates: start: 20220901
  14. ALBUMIN HUMAN [Concomitant]
     Active Substance: ALBUMIN HUMAN
     Indication: Dry eye
     Dosage: UNK
     Dates: start: 20190501

REACTIONS (1)
  - Bradycardia [Recovered/Resolved]

NARRATIVE: CASE EVENT DATE: 20231028
